FAERS Safety Report 7952387-0 (Version None)
Quarter: 2011Q4

REPORT INFORMATION
  Report Type: 
  Country: None (occurrence: None)
  Receive Date: 20111201
  Receipt Date: 20111122
  Transmission Date: 20120403
  Serious: Yes (Hospitalization)
  Sender: FDA-Public Use
  Company Number: US-GLAXOSMITHKLINE-A0768326A

PATIENT
  Age: 52 Year
  Sex: Male
  Weight: 84.1 kg

DRUGS (1)
  1. AVANDIA [Suspect]
     Indication: TYPE 2 DIABETES MELLITUS
     Dosage: 8MG PER DAY
     Route: 048
     Dates: start: 20000401, end: 20061201

REACTIONS (2)
  - MYOCARDIAL INFARCTION [None]
  - CORONARY ARTERY DISEASE [None]
